FAERS Safety Report 19699694 (Version 1)
Quarter: 2021Q3

REPORT INFORMATION
  Report Type: Spontaneous
  Country: CA (occurrence: CA)
  Receive Date: 20210813
  Receipt Date: 20210813
  Transmission Date: 20211014
  Serious: Yes (Disabling)
  Sender: FDA-Public Use
  Company Number: CA-TEVA-2021-CA-1940030

PATIENT
  Age: 16 Year
  Sex: Female
  Weight: 57 kg

DRUGS (2)
  1. DIPHENHYDRAMINE CITRATE/IBUPROFEN [Suspect]
     Active Substance: DIPHENHYDRAMINE CITRATE\IBUPROFEN
     Indication: PRODUCT USED FOR UNKNOWN INDICATION
     Dosage: 1600 MILLIGRAM DAILY;
     Route: 048
  2. CIPROFLOXACIN HYDROCHLORIDE. [Suspect]
     Active Substance: CIPROFLOXACIN HYDROCHLORIDE
     Indication: PRODUCT USED FOR UNKNOWN INDICATION
     Dosage: 1 GRAM DAILY;
     Route: 048

REACTIONS (3)
  - Acute kidney injury [Not Recovered/Not Resolved]
  - Blood creatinine increased [Not Recovered/Not Resolved]
  - Renal tubular necrosis [Not Recovered/Not Resolved]
